FAERS Safety Report 19922186 (Version 2)
Quarter: 2021Q4

REPORT INFORMATION
  Report Type: Spontaneous
  Country: JP (occurrence: JP)
  Receive Date: 20211006
  Receipt Date: 20211028
  Transmission Date: 20220304
  Serious: Yes (Death, Other)
  Sender: FDA-Public Use
  Company Number: NVSJ2021JP004911

PATIENT
  Age: 37 Year
  Sex: Female
  Weight: 58 kg

DRUGS (7)
  1. VOTRIENT [Suspect]
     Active Substance: PAZOPANIB HYDROCHLORIDE
     Indication: Angiosarcoma
     Dosage: 800MG, QD
     Route: 048
     Dates: start: 20210210, end: 20210324
  2. VOTRIENT [Suspect]
     Active Substance: PAZOPANIB HYDROCHLORIDE
     Dosage: 600 MG, QD
     Route: 048
     Dates: start: 20210407, end: 20210502
  3. VOTRIENT [Suspect]
     Active Substance: PAZOPANIB HYDROCHLORIDE
     Dosage: 400 MG, QD
     Route: 048
     Dates: start: 20210514
  4. AMLODIPINE BESYLATE\VALSARTAN [Suspect]
     Active Substance: AMLODIPINE BESYLATE\VALSARTAN
     Indication: Hypertension
     Dosage: 1 DF, QD
     Route: 048
     Dates: start: 20210324, end: 20210427
  5. LYRICA [Concomitant]
     Active Substance: PREGABALIN
     Indication: Neuralgia
     Dosage: 1 DF, BID
     Route: 048
     Dates: start: 20210108
  6. LOXOPROFEN [Concomitant]
     Active Substance: LOXOPROFEN
     Indication: Pain
     Dosage: 1 DF, TID
     Route: 048
     Dates: start: 20210108
  7. REBAMIPIDE [Concomitant]
     Active Substance: REBAMIPIDE
     Indication: Product used for unknown indication
     Dosage: 1 DF, TID
     Route: 048
     Dates: start: 20210108

REACTIONS (8)
  - Tumour rupture [Fatal]
  - Shock haemorrhagic [Fatal]
  - Exsanguination [Fatal]
  - Hypertension [Recovering/Resolving]
  - Hypokalaemia [Recovered/Resolved]
  - Proteinuria [Not Recovered/Not Resolved]
  - Oedema [Recovering/Resolving]
  - Vomiting [Recovered/Resolved]

NARRATIVE: CASE EVENT DATE: 20210303
